FAERS Safety Report 20855735 (Version 2)
Quarter: 2023Q1

REPORT INFORMATION
  Report Type: Spontaneous
  Country: US (occurrence: US)
  Receive Date: 20220520
  Receipt Date: 20230131
  Transmission Date: 20230418
  Serious: No
  Sender: FDA-Public Use
  Company Number: US-PFIZER INC-202200702752

PATIENT
  Age: 60 Year
  Sex: Female

DRUGS (1)
  1. INLYTA [Suspect]
     Active Substance: AXITINIB
     Dosage: 5 MG (TAKE 1 TABLET EVERY 12 HOURS  )
     Dates: start: 20220322

REACTIONS (2)
  - Therapeutic response unexpected [Not Recovered/Not Resolved]
  - Visual impairment [Unknown]
